FAERS Safety Report 6193331-9 (Version None)
Quarter: 2009Q2

REPORT INFORMATION
  Report Type: 
  Country: None (occurrence: None)
  Receive Date: 20090518
  Receipt Date: 20090513
  Transmission Date: 20091009
  Serious: Yes (Other)
  Sender: FDA-Public Use
  Company Number: US-B.I. PHARMACEUTICALS,INC./RIDGEFIELD-2009-BP-05978BP

PATIENT
  Age: 70 Year
  Sex: Female

DRUGS (1)
  1. AGGRENOX [Suspect]

REACTIONS (3)
  - ABDOMINAL DISCOMFORT [None]
  - HEADACHE [None]
  - TRANSIENT ISCHAEMIC ATTACK [None]
